FAERS Safety Report 20414969 (Version 2)
Quarter: 2022Q1

REPORT INFORMATION
  Report Type: Spontaneous
  Country: JP (occurrence: JP)
  Receive Date: 20220202
  Receipt Date: 20220224
  Transmission Date: 20220423
  Serious: Yes (Other)
  Sender: FDA-Public Use
  Company Number: JP-JPN-JP2022JPN013421

PATIENT
  Age: 67 Year
  Sex: Male

DRUGS (4)
  1. XYZAL [Interacting]
     Active Substance: LEVOCETIRIZINE DIHYDROCHLORIDE
     Indication: Product used for unknown indication
     Dosage: 5 MILLIGRAM, ONCE DAILY (QD)
  2. VONOPRAZAN [Interacting]
     Active Substance: VONOPRAZAN
     Indication: Gastric ulcer
     Dosage: 20 MILLIGRAM, ONCE DAILY (QD)
  3. LISINOPRIL [Concomitant]
     Active Substance: LISINOPRIL
     Indication: Product used for unknown indication
     Dosage: 10 MILLIGRAM, ONCE DAILY (QD)
  4. PRAVASTATIN SODIUM [Concomitant]
     Active Substance: PRAVASTATIN SODIUM
     Indication: Product used for unknown indication
     Dosage: 10 MILLIGRAM, ONCE DAILY (QD)

REACTIONS (4)
  - Long QT syndrome [Unknown]
  - Gastric ulcer [Unknown]
  - Abdominal pain [Unknown]
  - Drug interaction [Unknown]
